FAERS Safety Report 6615171-6 (Version None)
Quarter: 2010Q1

REPORT INFORMATION
  Report Type: 
  Country: None (occurrence: None)
  Receive Date: 20100305
  Receipt Date: 20100223
  Transmission Date: 20100710
  Serious: Yes (Other)
  Sender: FDA-Public Use
  Company Number: PHEH2009US18076

PATIENT
  Sex: Female
  Weight: 95.238 kg

DRUGS (6)
  1. EXJADE [Suspect]
     Indication: MYELODYSPLASTIC SYNDROME
     Dosage: 2000 MG, 4 TABLETS DAILY
     Route: 048
     Dates: start: 20091203, end: 20091228
  2. EXJADE [Suspect]
     Indication: IRON OVERLOAD
  3. FEXOFENADINE [Concomitant]
  4. ASPIRIN [Concomitant]
     Dosage: 81 MG, QD
  5. PREDNISONE [Concomitant]
     Dosage: 40,30,20,10/DAY
     Dates: start: 20091115, end: 20091210
  6. ALLEGRA [Concomitant]
     Dosage: 180 MG, Q96H
     Route: 048

REACTIONS (13)
  - ALOPECIA [None]
  - ANGINA PECTORIS [None]
  - BALANCE DISORDER [None]
  - EAR DISORDER [None]
  - FATIGUE [None]
  - HAEMOGLOBIN DECREASED [None]
  - NAUSEA [None]
  - QUALITY OF LIFE DECREASED [None]
  - SYNCOPE [None]
  - THIRST [None]
  - VISION BLURRED [None]
  - VISUAL IMPAIRMENT [None]
  - VITREOUS FLOATERS [None]
